FAERS Safety Report 18425734 (Version 1)
Quarter: 2020Q4

REPORT INFORMATION
  Report Type: Spontaneous
  Country: US (occurrence: US)
  Receive Date: 20201025
  Receipt Date: 20201025
  Transmission Date: 20210114
  Serious: Yes (Life-Threatening, Hospitalization)
  Sender: FDA-Public Use
  Company Number: None

PATIENT
  Age: 69 Year
  Sex: Male
  Weight: 96.75 kg

DRUGS (1)
  1. DENOSUMAB [Suspect]
     Active Substance: DENOSUMAB
     Indication: HYPERCALCAEMIA OF MALIGNANCY
     Dosage: ?          OTHER FREQUENCY:ONCE;?
     Route: 058
     Dates: start: 20200906, end: 20200906

REACTIONS (6)
  - Electrocardiogram QT prolonged [None]
  - Hypocalcaemia [None]
  - Tremor [None]
  - Myoclonus [None]
  - Dysarthria [None]
  - Tongue movement disturbance [None]

NARRATIVE: CASE EVENT DATE: 20201018
